FAERS Safety Report 25823638 (Version 1)
Quarter: 2025Q3

REPORT INFORMATION
  Report Type: Spontaneous
  Country: US (occurrence: None)
  Receive Date: 20250918
  Receipt Date: 20250918
  Transmission Date: 20251021
  Serious: Yes (Disabling)
  Sender: FDA-CTU
  Company Number: None

PATIENT
  Age: 84 Year
  Sex: Female
  Weight: 58.5 kg

DRUGS (3)
  1. CIPRO [Suspect]
     Active Substance: CIPROFLOXACIN HYDROCHLORIDE
     Indication: Urinary tract infection
     Dosage: OTHER QUANTITY : 1 CAPSULE(S);?FREQUENCY : TWICE A DAY;?
     Route: 048
     Dates: start: 20250820, end: 20250826
  2. ZANUBRUTINIB [Concomitant]
     Active Substance: ZANUBRUTINIB
  3. VITAMINS [Concomitant]
     Active Substance: VITAMINS

REACTIONS (6)
  - Tendon disorder [None]
  - Toxicity to various agents [None]
  - Musculoskeletal stiffness [None]
  - Gait disturbance [None]
  - Drug ineffective [None]
  - Product prescribing issue [None]

NARRATIVE: CASE EVENT DATE: 20250905
